FAERS Safety Report 5957734-7 (Version None)
Quarter: 2008Q4

REPORT INFORMATION
  Report Type: 
  Country: None (occurrence: None)
  Receive Date: 20081119
  Receipt Date: 20081111
  Transmission Date: 20090506
  Serious: Yes (Hospitalization)
  Sender: FDA-Public Use
  Company Number: US-JNJFOC-20081102982

PATIENT
  Age: 11 Year
  Sex: Female
  Weight: 39.1 kg

DRUGS (3)
  1. INFLIXIMAB [Suspect]
     Indication: JUVENILE ARTHRITIS
     Route: 042
  2. METHYLPREDNISOLONE [Suspect]
     Indication: JUVENILE ARTHRITIS
     Route: 042
  3. SULINDAC [Concomitant]

REACTIONS (1)
  - HERPES ZOSTER [None]
